FAERS Safety Report 4394631-5 (Version None)
Quarter: 2004Q3

REPORT INFORMATION
  Report Type: 
  Country: None (occurrence: None)
  Receive Date: 20040707
  Receipt Date: 20040625
  Transmission Date: 20050211
  Serious: Yes (Other)
  Sender: FDA-Public Use
  Company Number: 2003024032

PATIENT
  Age: 71 Year
  Sex: Male
  Weight: 83.9154 kg

DRUGS (15)
  1. GLIPIZIDE [Suspect]
     Indication: DIABETES MELLITUS
     Dosage: 10 MG (BID), ORAL
     Route: 048
     Dates: end: 20030501
  2. TIKOSYN [Suspect]
     Indication: ATRIAL FIBRILLATION
     Dosage: ORAL
     Route: 048
     Dates: start: 20020101, end: 20030711
  3. ACETYLSALICYLIC ACID SRT [Suspect]
     Indication: ANTICOAGULANT THERAPY
     Dosage: 325 MG (DAILY)
     Dates: end: 20030527
  4. CLOPIDOGREL BISULFATE [Suspect]
     Indication: THROMBOSIS
     Dosage: 75 MG (DAILY)
     Dates: end: 20030529
  5. FINASTERIDE [Concomitant]
  6. SIMVASTATIN [Concomitant]
  7. LISINOPRIL [Concomitant]
  8. PIOGLITAZONE HCL [Concomitant]
  9. ATENOLOL [Concomitant]
  10. TOCOPHEROL CONCENTRATE CAP [Concomitant]
  11. ASCORBIC ACID [Concomitant]
  12. ZINC (ZINC) [Concomitant]
  13. FOLIC ACID [Concomitant]
  14. SENNA FRUIT (SENNA FRUIT) [Concomitant]
  15. PSYLLIUM HYDROPHILIC MUCLILLOID (PSYLLIUM HDROPHILIC MUCLILLOID) [Concomitant]

REACTIONS (12)
  - ATRIAL FIBRILLATION [None]
  - BURNING SENSATION [None]
  - CARDIAC VENTRICULAR DISORDER [None]
  - DISCOMFORT [None]
  - EXTRASYSTOLES [None]
  - FLATULENCE [None]
  - HEART RATE IRREGULAR [None]
  - HYPERHIDROSIS [None]
  - HYPERSENSITIVITY [None]
  - PHARMACEUTICAL PRODUCT COMPLAINT [None]
  - RASH MACULAR [None]
  - RASH PRURITIC [None]
